FAERS Safety Report 16699741 (Version 1)
Quarter: 2019Q3

REPORT INFORMATION
  Report Type: Spontaneous
  Country: US (occurrence: US)
  Receive Date: 20190813
  Receipt Date: 20190813
  Transmission Date: 20191004
  Serious: Yes (Hospitalization)
  Sender: FDA-Public Use
  Company Number: US-NOVOPROD-678312

PATIENT
  Age: 41 Year
  Sex: Female

DRUGS (1)
  1. LEVEMIR [Suspect]
     Active Substance: INSULIN DETEMIR
     Indication: TYPE 2 DIABETES MELLITUS
     Dosage: MINIMUM OF 6 UNITS IN AM/PM WITH 5 UNIT CORRECTION; NOW AT 40 UNITS BID
     Route: 058
     Dates: start: 2017

REACTIONS (2)
  - Thrombosis [Recovering/Resolving]
  - Peripheral vascular disorder [Not Recovered/Not Resolved]

NARRATIVE: CASE EVENT DATE: 2019
